FAERS Safety Report 9827816 (Version 2)
Quarter: 2014Q1

REPORT INFORMATION
  Report Type: Report from Study
  Country: US (occurrence: US)
  Receive Date: 20140117
  Receipt Date: 20140207
  Transmission Date: 20141002
  Serious: Yes (Hospitalization)
  Sender: FDA-Public Use
  Company Number: US-BRISTOL-MYERS SQUIBB COMPANY-19981208

PATIENT
  Age: 56 Year
  Sex: Female

DRUGS (20)
  1. BLINDED: IPILIMUMAB [Suspect]
     Indication: SMALL CELL LUNG CANCER
     Dosage: 23-DEC-2013
     Route: 042
     Dates: start: 20131024
  2. ETOPOSIDE [Suspect]
     Indication: SMALL CELL LUNG CANCER
     Dosage: 14-NOV-2013 (12TH)
     Route: 042
     Dates: start: 20130911
  3. CARBOPLATIN [Suspect]
     Indication: SMALL CELL LUNG CANCER
     Dosage: 23-DEC-2013 (4TH)
     Route: 042
     Dates: start: 20130911
  4. BLINDED: PLACEBO [Suspect]
     Indication: SMALL CELL LUNG CANCER
     Route: 042
     Dates: start: 20131024
  5. DIPHENHYDRAMINE [Concomitant]
     Dates: start: 20131024
  6. ALBUTEROL SULFATE [Concomitant]
     Dates: start: 20130722
  7. ACETAMINOPHEN [Concomitant]
     Dates: start: 20131024
  8. BENADRYL [Concomitant]
     Dates: start: 20131111
  9. IBUPROFEN [Concomitant]
     Dates: start: 20130914
  10. POTASSIUM CHLORIDE [Concomitant]
     Dates: start: 20131126
  11. INSULIN GLARGINE [Concomitant]
     Dates: start: 2008
  12. HUMALOG [Concomitant]
     Dates: start: 20130916
  13. PREDNISONE [Concomitant]
     Dates: start: 20131211
  14. NEXIUM [Concomitant]
     Dates: start: 20131126
  15. METFORMIN [Concomitant]
     Dates: start: 199610
  16. VITAMIN D [Concomitant]
     Dates: start: 201201
  17. LISINOPRIL [Concomitant]
     Dates: start: 1999
  18. GLYBURIDE [Concomitant]
     Dates: start: 2010
  19. ASPIRIN [Concomitant]
     Dates: start: 1972
  20. TYLENOL [Concomitant]
     Dates: start: 20130914

REACTIONS (1)
  - Intestinal perforation [Not Recovered/Not Resolved]
